FAERS Safety Report 13551700 (Version 1)
Quarter: 2017Q2

REPORT INFORMATION
  Report Type: Spontaneous
  Country: US (occurrence: US)
  Receive Date: 20170516
  Receipt Date: 20170516
  Transmission Date: 20170830
  Serious: No
  Sender: FDA-Public Use
  Company Number: US-ACTELION-A-US2017-153818

PATIENT
  Age: 36 Year
  Sex: Male

DRUGS (1)
  1. TRACLEER [Suspect]
     Active Substance: BOSENTAN
     Indication: PULMONARY ARTERIAL HYPERTENSION
     Dosage: 125 MG, BID
     Route: 048
     Dates: start: 20170208

REACTIONS (6)
  - Chest pain [Unknown]
  - Syncope [Unknown]
  - Peripheral swelling [Unknown]
  - Weight fluctuation [Unknown]
  - Fatigue [Unknown]
  - Dizziness [Unknown]
